FAERS Safety Report 14166890 (Version 1)
Quarter: 2017Q4

REPORT INFORMATION
  Report Type: Report from Study
  Country: US (occurrence: US)
  Receive Date: 20171107
  Receipt Date: 20171107
  Transmission Date: 20180321
  Serious: Yes (Other)
  Sender: FDA-Public Use
  Company Number: US-BRISTOL-MYERS SQUIBB COMPANY-BMS-2017-098954

PATIENT
  Sex: Female

DRUGS (4)
  1. ARIPIPRAZOLE. [Suspect]
     Active Substance: ARIPIPRAZOLE
     Indication: SCHIZOAFFECTIVE DISORDER
     Route: 065
  2. PANTOPRAZOLE [Concomitant]
     Active Substance: PANTOPRAZOLE
     Indication: PRODUCT USED FOR UNKNOWN INDICATION
     Route: 065
  3. SERTRALINE [Concomitant]
     Active Substance: SERTRALINE HYDROCHLORIDE
     Indication: PRODUCT USED FOR UNKNOWN INDICATION
     Route: 065
  4. ARIPIPRAZOLE. [Suspect]
     Active Substance: ARIPIPRAZOLE
     Indication: SCHIZOAFFECTIVE DISORDER
     Dosage: 100 MG, UNK
     Route: 048

REACTIONS (11)
  - Cardiac disorder [Not Recovered/Not Resolved]
  - Therapeutic response unexpected [Unknown]
  - Diabetic neuropathy [Not Recovered/Not Resolved]
  - Depressive symptom [Not Recovered/Not Resolved]
  - Obesity [Not Recovered/Not Resolved]
  - Thinking abnormal [Not Recovered/Not Resolved]
  - Weight increased [Not Recovered/Not Resolved]
  - Hallucination [Not Recovered/Not Resolved]
  - Disturbance in attention [Unknown]
  - Libido increased [Unknown]
  - Sleep apnoea syndrome [Not Recovered/Not Resolved]
